FAERS Safety Report 4786939-6 (Version None)
Quarter: 2005Q3

REPORT INFORMATION
  Report Type: 
  Country: None (occurrence: None)
  Receive Date: 20050930
  Receipt Date: 20050930
  Transmission Date: 20060218
  Serious: Yes (Death, Hospitalization)
  Sender: FDA-Public Use
  Company Number: None

PATIENT
  Sex: Female
  Weight: 55.5 kg

DRUGS (15)
  1. TAXOTERE [Suspect]
     Indication: PERITONEAL CARCINOMA
     Dosage: SEE IMAGE
     Route: 042
     Dates: start: 20050922, end: 20050922
  2. PARAPLATIN [Suspect]
     Dosage: SEE IMAGE
     Route: 042
     Dates: start: 20050922
  3. TAXOL [Suspect]
     Dosage: SEE IMAGE
     Route: 033
     Dates: start: 20050922, end: 20050922
  4. AMEND [Concomitant]
  5. MSIR [Concomitant]
  6. PERCOCET [Concomitant]
  7. PHENERGAN [Concomitant]
  8. ZANTAC [Concomitant]
  9. ZOFRAN [Concomitant]
  10. AMBIEN [Concomitant]
  11. COUMADIN [Concomitant]
  12. DECADRON [Concomitant]
  13. MIRALAX [Concomitant]
  14. MS COTIN [Concomitant]
  15. VITAMEN K [Concomitant]

REACTIONS (16)
  - ABDOMINAL PAIN [None]
  - ACTIVATED PARTIAL THROMBOPLASTIN TIME PROLONGED [None]
  - AGGRESSION [None]
  - ANXIETY [None]
  - BRADYCARDIA [None]
  - CARDIO-RESPIRATORY ARREST [None]
  - CATHETER RELATED COMPLICATION [None]
  - CATHETER SITE PAIN [None]
  - FLUID RETENTION [None]
  - INTERNATIONAL NORMALISED RATIO INCREASED [None]
  - PAIN IN EXTREMITY [None]
  - PROTHROMBIN TIME PROLONGED [None]
  - PULMONARY EMBOLISM [None]
  - PULSE ABSENT [None]
  - PUPIL FIXED [None]
  - PUPILLARY REFLEX IMPAIRED [None]
